FAERS Safety Report 4687713-1 (Version None)
Quarter: 2005Q2

REPORT INFORMATION
  Report Type: 
  Country: None (occurrence: None)
  Receive Date: 20050608
  Receipt Date: 20050608
  Transmission Date: 20051028
  Serious: Yes (Hospitalization)
  Sender: FDA-Public Use
  Company Number: None

PATIENT
  Age: 91 Year
  Sex: Male
  Weight: 68 kg

DRUGS (8)
  1. LEVOFLOXACIN [Suspect]
     Indication: PNEUMONIA
     Dosage: 250MG PO QD
     Route: 048
  2. FUROSEMIDE [Concomitant]
  3. DIGOXIN [Concomitant]
  4. LISINOPRIL [Concomitant]
  5. COUMADIN [Concomitant]
  6. LIPITOR [Concomitant]
  7. PEPCID [Concomitant]
  8. NORVASC [Concomitant]

REACTIONS (4)
  - ASTHENIA [None]
  - BLOOD CREATININE INCREASED [None]
  - CONFUSIONAL STATE [None]
  - LETHARGY [None]
